FAERS Safety Report 4442291-7 (Version None)
Quarter: 2004Q3

REPORT INFORMATION
  Report Type: 
  Country: None (occurrence: None)
  Receive Date: 20040903
  Receipt Date: 20040412
  Transmission Date: 20050211
  Serious: Yes (Other)
  Sender: FDA-Public Use
  Company Number: 2004UW06848

PATIENT
  Age: 66 Year
  Sex: Male
  Weight: 92.5338 kg

DRUGS (6)
  1. CRESTOR [Suspect]
     Indication: BLOOD CHOLESTEROL INCREASED
     Dosage: 10 MG QOD PO
     Route: 048
     Dates: start: 20040323, end: 20040329
  2. CRESTOR [Suspect]
     Indication: CORONARY ARTERY DISEASE
     Dosage: 10 MG QOD PO
     Route: 048
     Dates: start: 20040323, end: 20040329
  3. ASPIRIN [Concomitant]
  4. BEXTRA [Concomitant]
  5. LISINOPRIL [Concomitant]
  6. NEXIUM [Concomitant]

REACTIONS (6)
  - ASTHENIA [None]
  - BACK PAIN [None]
  - BLOOD PRESSURE INCREASED [None]
  - MYALGIA [None]
  - NECK PAIN [None]
  - NON-CARDIAC CHEST PAIN [None]
